FAERS Safety Report 5912954-2 (Version None)
Quarter: 2008Q4

REPORT INFORMATION
  Report Type: 
  Country: None (occurrence: None)
  Receive Date: 20081008
  Receipt Date: 20080926
  Transmission Date: 20090506
  Serious: Yes (Life-Threatening, Other)
  Sender: FDA-Public Use
  Company Number: CH-PFIZER INC-2008076157

PATIENT
  Age: 45 Year
  Sex: Female
  Weight: 44 kg

DRUGS (3)
  1. CHANTIX [Suspect]
     Indication: SMOKING CESSATION THERAPY
     Dosage: FREQ:BID: EVERY DAY
     Route: 048
     Dates: start: 20080624, end: 20080909
  2. DEANXIT [Concomitant]
     Route: 048
     Dates: start: 20070211
  3. PRIORIN [Concomitant]
     Route: 048
     Dates: start: 20070111

REACTIONS (2)
  - DEPRESSION [None]
  - SUICIDAL IDEATION [None]
